FAERS Safety Report 7413701-8 (Version None)
Quarter: 2011Q2

REPORT INFORMATION
  Report Type: 
  Country: None (occurrence: None)
  Receive Date: 20110413
  Receipt Date: 20110401
  Transmission Date: 20111010
  Serious: Yes (Other)
  Sender: FDA-Public Use
  Company Number: US-ROCHE-770366

PATIENT
  Age: 81 Year
  Sex: Female

DRUGS (2)
  1. BEVACIZUMAB [Suspect]
     Dosage: UNK
     Route: 031
  2. RANIBIZUMAB [Suspect]
     Dosage: UNK
     Route: 031
     Dates: start: 20060101

REACTIONS (1)
  - MACULAR DEGENERATION [None]
